FAERS Safety Report 8680916 (Version 2)
Quarter: 2015Q1

REPORT INFORMATION
  Report Type: Report from Study
  Country: US (occurrence: US)
  Receive Date: 20120724
  Receipt Date: 20150129
  Transmission Date: 20150721
  Serious: Yes (Other)
  Sender: FDA-Public Use
  Company Number: US-ROCHE-1091188

PATIENT
  Sex: Female
  Weight: 30 kg

DRUGS (9)
  1. XOLAIR [Suspect]
     Active Substance: OMALIZUMAB
     Indication: STATUS ASTHMATICUS
     Route: 058
     Dates: start: 2004
  2. SINGULAIR [Concomitant]
     Active Substance: MONTELUKAST SODIUM
     Route: 065
  3. BENADRYL [Concomitant]
     Active Substance: DIPHENHYDRAMINE HYDROCHLORIDE
  4. PULMICORT TURBUHALER [Concomitant]
     Active Substance: BUDESONIDE
     Route: 065
  5. ZYRTEC [Concomitant]
     Active Substance: CETIRIZINE HYDROCHLORIDE
     Route: 065
  6. BUDESONIDE. [Concomitant]
     Active Substance: BUDESONIDE
  7. PREDNISONE. [Concomitant]
     Active Substance: PREDNISONE
     Route: 065
  8. ALBUTEROL. [Concomitant]
     Active Substance: ALBUTEROL
  9. NASONEX [Concomitant]
     Active Substance: MOMETASONE FUROATE

REACTIONS (15)
  - Malaise [Unknown]
  - Asthma [Unknown]
  - Upper respiratory tract infection [Unknown]
  - Throat tightness [Unknown]
  - Middle insomnia [Unknown]
  - Rash [Unknown]
  - Nasal congestion [Unknown]
  - Oropharyngeal pain [Unknown]
  - Excoriation [Unknown]
  - General physical health deterioration [Unknown]
  - Rash erythematous [Unknown]
  - Eczema [Unknown]
  - Ear pruritus [Unknown]
  - Drug dose omission [Unknown]
  - Sinus congestion [Unknown]
